FAERS Safety Report 8966931 (Version 1)
Quarter: 2012Q4

REPORT INFORMATION
  Report Type: Report from Study
  Country: US (occurrence: US)
  Receive Date: 20121214
  Receipt Date: 20121214
  Transmission Date: 20130627
  Serious: Yes (Other)
  Sender: FDA-Public Use
  Company Number: US-US-EMD SERONO, INC.-7181063

PATIENT
  Age: 52 Year
  Sex: Female
  Weight: 58 kg

DRUGS (21)
  1. SEROSTIM [(SOMATROPIN (RDNA ORIGIN) FOR INJECTION)] [Suspect]
     Indication: CACHEXIA
     Dates: start: 20120118
  2. VENTOLIN [Concomitant]
     Indication: PRODUCT USED FOR UNKNOWN INDICATION
     Route: 055
     Dates: start: 20081210
  3. ALBUTEROL [Concomitant]
     Indication: PRODUCT USED FOR UNKNOWN INDICATION
     Dosage: 2.5mg/3ml
     Route: 055
     Dates: start: 20120424
  4. LUNESTA [Concomitant]
     Indication: PRODUCT USED FOR UNKNOWN INDICATION
     Dates: start: 20120426
  5. WELLBUTRIN XL [Concomitant]
     Indication: PRODUCT USED FOR UNKNOWN INDICATION
     Route: 048
     Dates: start: 20120512
  6. WELLBUTRIN XL [Concomitant]
     Route: 048
     Dates: start: 20120512
  7. MULTIVITAMIN [Concomitant]
     Indication: PRODUCT USED FOR UNKNOWN INDICATION
     Route: 048
     Dates: start: 20120426
  8. IBUPROFEN [Concomitant]
     Indication: PRODUCT USED FOR UNKNOWN INDICATION
     Route: 048
     Dates: start: 20120426
  9. VITAMIN D [Concomitant]
     Indication: PRODUCT USED FOR UNKNOWN INDICATION
     Route: 048
     Dates: start: 20120426
  10. BD INSULIN SYRINGE [Concomitant]
     Indication: PRODUCT USED FOR UNKNOWN INDICATION
     Dates: start: 20120406
  11. ASTEPRO [Concomitant]
     Indication: PRODUCT USED FOR UNKNOWN INDICATION
     Route: 045
     Dates: start: 20120426
  12. ULTRAM [Concomitant]
     Indication: PRODUCT USED FOR UNKNOWN INDICATION
     Route: 048
     Dates: start: 20120512
  13. LYRICA [Concomitant]
     Indication: PRODUCT USED FOR UNKNOWN INDICATION
     Dates: start: 20120514
  14. LYRICA [Concomitant]
  15. ACYCLOVIR [Concomitant]
     Indication: PRODUCT USED FOR UNKNOWN INDICATION
     Route: 048
  16. LAMISIL [Concomitant]
     Indication: PRODUCT USED FOR UNKNOWN INDICATION
     Route: 048
     Dates: start: 20120713
  17. EPZICOM [Concomitant]
     Indication: HIV INFECTION
     Dosage: 600-300 mg Tablet, one oral daily
     Dates: start: 20120723
  18. ISENTRESS [Concomitant]
     Indication: HIV INFECTION
     Route: 048
     Dates: start: 20120723
  19. SYMBICORT [Concomitant]
     Indication: PRODUCT USED FOR UNKNOWN INDICATION
     Route: 055
     Dates: start: 20120524
  20. AGGRENOX [Concomitant]
     Indication: PRODUCT USED FOR UNKNOWN INDICATION
     Dosage: 25-200 mg capsule, ER
     Route: 048
  21. SAVELLA [Concomitant]
     Indication: PRODUCT USED FOR UNKNOWN INDICATION
     Route: 048

REACTIONS (31)
  - Cervical spinal stenosis [Not Recovered/Not Resolved]
  - Flatulence [Not Recovered/Not Resolved]
  - Dizziness [Not Recovered/Not Resolved]
  - Memory impairment [Not Recovered/Not Resolved]
  - Sinus headache [Unknown]
  - Paranasal sinus hypersecretion [Unknown]
  - Neck pain [Unknown]
  - Heart rate increased [Unknown]
  - Muscular weakness [Not Recovered/Not Resolved]
  - Back pain [Unknown]
  - Dysaesthesia [Unknown]
  - Asthenia [Unknown]
  - Anxiety [Unknown]
  - Depression [Unknown]
  - Crying [Unknown]
  - Disturbance in attention [Unknown]
  - Mood altered [Unknown]
  - Aphasia [Unknown]
  - Cognitive disorder [Unknown]
  - Radiculopathy [Unknown]
  - Dermatophytosis [Unknown]
  - Gait disturbance [Unknown]
  - Nausea [Not Recovered/Not Resolved]
  - Hypoaesthesia [Not Recovered/Not Resolved]
  - Pain [Not Recovered/Not Resolved]
  - Insomnia [Not Recovered/Not Resolved]
  - Fatigue [Unknown]
  - Arthralgia [Unknown]
  - Musculoskeletal stiffness [Unknown]
  - Bronchitis [Not Recovered/Not Resolved]
  - Paraesthesia [Unknown]
